FAERS Safety Report 16783441 (Version 1)
Quarter: 2019Q3

REPORT INFORMATION
  Report Type: Spontaneous
  Country: GB (occurrence: GB)
  Receive Date: 20190907
  Receipt Date: 20190907
  Transmission Date: 20191005
  Serious: Yes (Hospitalization)
  Sender: FDA-Public Use
  Company Number: GB-TEVA-2019-GB-1103040

PATIENT
  Age: 84 Year
  Sex: Male

DRUGS (20)
  1. RITUXIMAB. [Suspect]
     Active Substance: RITUXIMAB
     Indication: B-CELL LYMPHOMA
     Dosage: 700 MG
     Route: 041
     Dates: start: 20190725
  2. CYCLIZINE [Concomitant]
     Active Substance: CYCLIZINE
     Dosage: 50MG THREE TIMES DAILY AS NECESSARY
     Route: 048
     Dates: start: 20190725
  3. ALENDRONIC ACID [Concomitant]
     Active Substance: ALENDRONIC ACID
     Dosage: 70 MG, 1 WEEK
     Route: 048
  4. OMEPRAZOLE. [Concomitant]
     Active Substance: OMEPRAZOLE
     Dosage: 20 MG, 1 DAY
     Route: 048
  5. CYCLOPHOSPHAMIDE. [Suspect]
     Active Substance: CYCLOPHOSPHAMIDE
     Indication: B-CELL LYMPHOMA
     Dosage: 500 MG
     Route: 040
     Dates: start: 20190725
  6. DOCUSATE [Concomitant]
     Active Substance: DOCUSATE
     Dosage: 400 MG, 1 DAY
     Route: 048
  7. HYPROMELLOSE [Concomitant]
     Active Substance: HYPROMELLOSES
     Dosage: 1 DROP AS NECESSARY; 1 GTT
     Route: 031
     Dates: start: 20190716
  8. NAPROXEN. [Concomitant]
     Active Substance: NAPROXEN
     Dosage: 500 MG, 1 DAY
     Route: 048
  9. LENOGRASTIM [Concomitant]
     Active Substance: LENOGRASTIM
     Dosage: 33.6 MILLION ONCE DAILY
     Route: 058
     Dates: start: 20190801, end: 20190804
  10. ONDANSETRON [Concomitant]
     Active Substance: ONDANSETRON
     Dosage: 16 MG, 1 DAY
     Route: 048
     Dates: start: 20190725, end: 20190727
  11. ALLOPURINOL. [Concomitant]
     Active Substance: ALLOPURINOL
     Dosage: 300 MG, 1 DAY
     Route: 048
     Dates: start: 20190725, end: 20190801
  12. IBUPROFEN. [Concomitant]
     Active Substance: IBUPROFEN
     Dosage: APPLY THREE TIMES DAILY AS NECESSARY
     Route: 062
  13. PREDNISOLONE. [Concomitant]
     Active Substance: PREDNISOLONE
     Dosage: 30 MG, 1 DAY
     Route: 048
     Dates: end: 20190722
  14. PREDNISOLONE. [Concomitant]
     Active Substance: PREDNISOLONE
     Dosage: 75 MG, 1 DAY
     Route: 048
     Dates: start: 20190725, end: 20190729
  15. MACROGOL [Concomitant]
     Active Substance: POLYETHYLENE GLYCOLS
     Dosage: 1 SACHETY OM; 13.7 GRAM, 1 DAY
     Route: 048
  16. PARACETAMOL [Concomitant]
     Active Substance: ACETAMINOPHEN
     Dosage: 500MG-1G FOUR TIMES DAILY AS NECESSARY
     Route: 048
  17. CHLORAMPHENICOL [Concomitant]
     Active Substance: CHLORAMPHENICOL
     Dosage: APPLY FOUR TIMES DAILY; 4 DOSAGE FORM, 1 DAY
     Route: 031
     Dates: start: 20190718
  18. VINCRISTINE [Suspect]
     Active Substance: VINCRISTINE
     Indication: B-CELL LYMPHOMA
     Dosage: 1 MG
     Route: 041
     Dates: start: 20190725
  19. ACICLOVIR [Concomitant]
     Active Substance: ACYCLOVIR
     Dosage: 800 MG, 1 DAY
     Route: 048
     Dates: start: 20190725
  20. DOXORUBICIN [Suspect]
     Active Substance: DOXORUBICIN
     Indication: B-CELL LYMPHOMA
     Dosage: 50 MG
     Route: 040
     Dates: start: 20190725

REACTIONS (1)
  - Supraventricular tachycardia [Recovered/Resolved]

NARRATIVE: CASE EVENT DATE: 20190730
